FAERS Safety Report 5095631-2 (Version None)
Quarter: 2006Q3

REPORT INFORMATION
  Report Type: 
  Country: None (occurrence: None)
  Receive Date: 20060904
  Receipt Date: 20060823
  Transmission Date: 20061208
  Serious: Yes (Other)
  Sender: FDA-Public Use
  Company Number: US-SP-2006-02252

PATIENT
  Age: 74 Year
  Sex: Male

DRUGS (4)
  1. THERACYS [Suspect]
     Indication: BLADDER CANCER
     Route: 043
     Dates: start: 20060823
  2. THERACYS [Suspect]
     Route: 043
     Dates: start: 20060823
  3. DIOVAN [Concomitant]
  4. METFORMIN HCL [Concomitant]

REACTIONS (3)
  - CHILLS [None]
  - DYSPNOEA [None]
  - PYREXIA [None]
